FAERS Safety Report 4677325-8 (Version None)
Quarter: 2005Q2

REPORT INFORMATION
  Report Type: 
  Country: None (occurrence: None)
  Receive Date: 20050525
  Receipt Date: 20050525
  Transmission Date: 20051028
  Serious: Yes (Life-Threatening, Hospitalization, Disabling)
  Sender: FDA-Public Use
  Company Number: None

PATIENT
  Age: 34 Year
  Sex: Female
  Weight: 93 kg

DRUGS (7)
  1. ENOXAPARIN 100MG [Suspect]
     Indication: AORTIC VALVE REPLACEMENT
     Dosage: 93MG  BID SUBCUTANEOUS
     Route: 058
     Dates: start: 20041214, end: 20050120
  2. ENOXAPARIN 100MG [Suspect]
     Indication: ATRIAL FIBRILLATION
     Dosage: 93MG  BID SUBCUTANEOUS
     Route: 058
     Dates: start: 20041214, end: 20050120
  3. ENOXAPARIN 100MG [Suspect]
     Indication: MITRAL VALVE REPLACEMENT
     Dosage: 93MG  BID SUBCUTANEOUS
     Route: 058
     Dates: start: 20041214, end: 20050120
  4. REGULAR INSULIN [Concomitant]
  5. NPH INSULIN [Concomitant]
  6. ENOXAPARIN SODIUM [Concomitant]
  7. VITAMIN AND MINERAL PRENATAL SUPPLEMENT W/ FOLIC ACID CAP [Concomitant]

REACTIONS (2)
  - DRUG EXPOSURE DURING PREGNANCY [None]
  - ISCHAEMIC STROKE [None]
